FAERS Safety Report 8473278-5 (Version None)
Quarter: 2012Q2

REPORT INFORMATION
  Report Type: 
  Country: None (occurrence: None)
  Receive Date: 20120627
  Receipt Date: 20120615
  Transmission Date: 20120825
  Serious: Yes (Hospitalization)
  Sender: FDA-Public Use
  Company Number: AU-ALLERGAN-1208551US

PATIENT
  Age: 62 Year
  Sex: Male

DRUGS (13)
  1. BLINDED DEX 0.7MG INS (9632X) [Suspect]
     Indication: DIABETIC RETINAL OEDEMA
     Dosage: 0.7 MG, SINGLE
     Route: 031
     Dates: start: 20120424, end: 20120424
  2. LEVOTHYROXINE SODIUM [Concomitant]
  3. ASPIRIN [Concomitant]
  4. ENDEP [Concomitant]
  5. BLINDED AVASTIN                            /01555201/ [Suspect]
     Indication: DIABETIC RETINAL OEDEMA
     Dosage: 0.7 MG, SINGLE
     Route: 031
     Dates: start: 20120424, end: 20120424
  6. MOVIPREP [Concomitant]
  7. NOVOLOG MIX 70/30 [Concomitant]
  8. PANADOL OSTEO [Concomitant]
  9. LIPIDIL [Concomitant]
  10. VITAMIN B-12 [Concomitant]
  11. RABEPRAZOLE SODIUM [Concomitant]
  12. METFORMIN HCL [Concomitant]
  13. SPIRIVA [Concomitant]

REACTIONS (1)
  - ANGINA PECTORIS [None]
